FAERS Safety Report 13380756 (Version 1)
Quarter: 2017Q1

REPORT INFORMATION
  Report Type: Spontaneous
  Country: US (occurrence: US)
  Receive Date: 20170328
  Receipt Date: 20170328
  Transmission Date: 20170429
  Serious: Yes (Other)
  Sender: FDA-Public Use
  Company Number: None

PATIENT
  Age: 69 Year
  Sex: Female
  Weight: 58.5 kg

DRUGS (21)
  1. ZINC. [Concomitant]
     Active Substance: ZINC
  2. NON ACIDIC C [Concomitant]
  3. LACTOSE DEFENSE PROBIOTIC [Concomitant]
  4. TURMERIC [Concomitant]
     Active Substance: TURMERIC
  5. LISINOPRIL. [Concomitant]
     Active Substance: LISINOPRIL
  6. AMLODIPINE [Concomitant]
     Active Substance: AMLODIPINE BESYLATE
  7. CALCIUM [Concomitant]
     Active Substance: CALCIUM
  8. GLUCOSAMINE [Concomitant]
     Active Substance: GLUCOSAMINE
  9. VITAMIN E [Concomitant]
     Active Substance: .ALPHA.-TOCOPHEROL
  10. FISH OIL [Concomitant]
     Active Substance: FISH OIL
  11. LEVULAN KERASTICK [Suspect]
     Active Substance: AMINOLEVULINIC ACID HYDROCHLORIDE
     Indication: ACTINIC KERATOSIS
     Dosage: ?          OTHER FREQUENCY:APPLIED TO FACE;?
     Route: 061
  12. PROBIOTIC 10 [Concomitant]
  13. COPPER [Concomitant]
     Active Substance: COPPER
  14. COCONUT OIL [Concomitant]
     Active Substance: COCONUT OIL
  15. COQ10 [Concomitant]
     Active Substance: UBIDECARENONE
  16. STOOL SOFTENER (DOCUSATE) [Concomitant]
     Active Substance: DOCUSATE
  17. LUTEIN + ZEAXANTHIN [Concomitant]
  18. MATURE MULTIVITAMIN ONCE A DAY (ALSO HAS LYCOPENE LUTEIN CALCIUM) [Concomitant]
     Active Substance: VITAMINS
  19. MSM [Concomitant]
     Active Substance: DIMETHYL SULFONE
  20. PRAVASTATIN. [Concomitant]
     Active Substance: PRAVASTATIN
  21. CHONDROITIN [Concomitant]
     Active Substance: CHONDROITIN

REACTIONS (7)
  - Swelling [None]
  - Headache [None]
  - Dermatitis [None]
  - Burning sensation [None]
  - Pyrexia [None]
  - Pain [None]
  - Erythema [None]

NARRATIVE: CASE EVENT DATE: 20170325
